FAERS Safety Report 4647039-9 (Version None)
Quarter: 2005Q2

REPORT INFORMATION
  Report Type: 
  Country: None (occurrence: None)
  Receive Date: 20050331
  Receipt Date: 20050112
  Transmission Date: 20051028
  Serious: No
  Sender: FDA-Public Use
  Company Number: 04P-163-0262617-00

PATIENT
  Age: 62 Year
  Sex: Female
  Weight: 68.0396 kg

DRUGS (12)
  1. HUMIRA [Suspect]
     Indication: RHEUMATOID ARTHRITIS
     Dosage: 40 MG, 1 IN 2 WK, SUBCUTANEOUS
     Route: 058
     Dates: start: 20040101
  2. AMITRIPTYLINE HCL TAB [Concomitant]
  3. METHOTREXATE [Concomitant]
  4. QUINIDINE HCL [Concomitant]
  5. FOLIC ACID [Concomitant]
  6. TOCOPHEROL CONCENTRATE CAP [Concomitant]
  7. LISINOPRIL [Concomitant]
  8. CLONIDINE [Concomitant]
  9. LOVASTATIN [Concomitant]
  10. HYDROCODONE BITARTRATE [Concomitant]
  11. DYAZIDE [Concomitant]
  12. CELECOXIB [Concomitant]

REACTIONS (2)
  - BLOOD URINE PRESENT [None]
  - PROTEIN URINE [None]
